FAERS Safety Report 5712351-9 (Version None)
Quarter: 2008Q2

REPORT INFORMATION
  Report Type: 
  Country: None (occurrence: None)
  Receive Date: 20080421
  Receipt Date: 20080421
  Transmission Date: 20081010
  Serious: Yes (Life-Threatening, Hospitalization)
  Sender: FDA-Public Use
  Company Number: None

PATIENT
  Age: 8 Year
  Sex: Male
  Weight: 27.2158 kg

DRUGS (1)
  1. STRATTERA [Suspect]
     Indication: ATTENTION DEFICIT/HYPERACTIVITY DISORDER
     Dosage: ONE PILL 1X PER DAY PO
     Route: 048
     Dates: start: 20080324, end: 20080407

REACTIONS (3)
  - LIVER FUNCTION TEST ABNORMAL [None]
  - SUICIDAL IDEATION [None]
  - SUICIDE ATTEMPT [None]
